FAERS Safety Report 6243619-8 (Version None)
Quarter: 2009Q2

REPORT INFORMATION
  Report Type: 
  Country: None (occurrence: None)
  Receive Date: 20090624
  Receipt Date: 20090611
  Transmission Date: 20091009
  Serious: Yes (Other)
  Sender: FDA-Public Use
  Company Number: US-PFIZER INC-2009226553

PATIENT
  Sex: Male

DRUGS (1)
  1. DILANTIN [Suspect]
     Indication: HEAD INJURY
     Dosage: 100 MG, UNK

REACTIONS (6)
  - DRUG DISPENSING ERROR [None]
  - GAIT DISTURBANCE [None]
  - HAEMATEMESIS [None]
  - LOSS OF CONSCIOUSNESS [None]
  - OVERDOSE [None]
  - VISUAL ACUITY REDUCED [None]
